FAERS Safety Report 10025015 (Version 4)
Quarter: 2015Q3

REPORT INFORMATION
  Report Type: Spontaneous
  Country: US (occurrence: US)
  Receive Date: 20140320
  Receipt Date: 20150709
  Transmission Date: 20151125
  Serious: Yes (Hospitalization, Other)
  Sender: FDA-Public Use
  Company Number: US-009507513-1403USA007830

PATIENT
  Sex: Female

DRUGS (2)
  1. FOSAMAX [Suspect]
     Active Substance: ALENDRONATE SODIUM
     Indication: OSTEOPOROSIS
     Dosage: 70 MG, QW
     Route: 048
     Dates: start: 20011102, end: 20071127
  2. ALENDRONATE SODIUM. [Suspect]
     Active Substance: ALENDRONATE SODIUM
     Indication: OSTEOPOROSIS
     Dosage: 70 MG, QW
     Route: 048
     Dates: start: 20080228, end: 20090413

REACTIONS (15)
  - Pelvic cyst [Unknown]
  - Hip arthroplasty [Unknown]
  - Back pain [Not Recovered/Not Resolved]
  - Lower urinary tract symptoms [Unknown]
  - Femur fracture [Recovering/Resolving]
  - Osteoarthritis [Unknown]
  - Knee arthroplasty [Unknown]
  - Escherichia infection [Unknown]
  - Cyst [Unknown]
  - Periodontal operation [Unknown]
  - Arthritis [Unknown]
  - Haemorrhoidal haemorrhage [Unknown]
  - Surgery [Unknown]
  - Skin cancer [Unknown]
  - Clostridium difficile infection [Unknown]

NARRATIVE: CASE EVENT DATE: 2004
